FAERS Safety Report 9798714 (Version 1)
Quarter: 2014Q1

REPORT INFORMATION
  Report Type: Spontaneous
  Country: US (occurrence: US)
  Receive Date: 20140106
  Receipt Date: 20140106
  Transmission Date: 20141002
  Serious: No
  Sender: FDA-Public Use
  Company Number: US-GILEAD-2010-0029872

PATIENT
  Sex: Male
  Weight: 97.3 kg

DRUGS (18)
  1. LETAIRIS [Suspect]
     Indication: PULMONARY ARTERIAL HYPERTENSION
     Route: 048
     Dates: start: 20100423
  2. REVATIO [Concomitant]
  3. AMLODIPINE [Concomitant]
  4. TOPROL XL [Concomitant]
  5. FUROSEMIDE [Concomitant]
  6. HYDROCHLOROTHIAZIDE [Concomitant]
  7. POTASSIUM CHLORIDE [Concomitant]
  8. AVELOX [Concomitant]
  9. SINGULAIR [Concomitant]
  10. ASMANEX [Concomitant]
  11. ALBUTEROL [Concomitant]
  12. ADVAIR [Concomitant]
  13. PROAIR [Concomitant]
  14. ACTOS [Concomitant]
  15. PREDNISONE [Concomitant]
  16. METFORMIN [Concomitant]
  17. CRESTOR [Concomitant]
  18. TYLENOL #4 [Concomitant]

REACTIONS (1)
  - Unevaluable event [Unknown]
